FAERS Safety Report 18375320 (Version 2)
Quarter: 2021Q1

REPORT INFORMATION
  Report Type: Spontaneous
  Country: IT (occurrence: IT)
  Receive Date: 20201012
  Receipt Date: 20210224
  Transmission Date: 20210419
  Serious: Yes (Hospitalization)
  Sender: FDA-Public Use
  Company Number: IT-AUROBINDO-AUR-APL-2020-051482

PATIENT
  Age: 47 Year
  Sex: Female

DRUGS (2)
  1. CIPROFLOXACIN FILM?COATED TABLETS [Suspect]
     Active Substance: CIPROFLOXACIN
     Indication: CYSTITIS ESCHERICHIA
     Dosage: 1 GRAM, ONCE A DAY
     Route: 048
     Dates: start: 20200829, end: 20200831
  2. TICHE [Concomitant]
     Indication: POST PROCEDURAL HYPOTHYROIDISM
     Dosage: 100 MICROGRAM, ONCE A DAY
     Route: 048

REACTIONS (3)
  - Paraesthesia [Recovered/Resolved]
  - Paraesthesia oral [Recovered/Resolved]
  - Oral dysaesthesia [Recovered/Resolved]

NARRATIVE: CASE EVENT DATE: 20200831
